FAERS Safety Report 9409993 (Version 2)
Quarter: 2013Q4

REPORT INFORMATION
  Report Type: Spontaneous
  Country: US (occurrence: US)
  Receive Date: 20130719
  Receipt Date: 20131029
  Transmission Date: 20140711
  Serious: Yes (Hospitalization, Other)
  Sender: FDA-Public Use
  Company Number: US-NOVOPROD-382921

PATIENT
  Age: 70 Year
  Sex: Female
  Weight: 72.11 kg

DRUGS (1)
  1. NORDITROPIN FLEXPRO 10 MG/ML [Suspect]
     Indication: PRODUCT USED FOR UNKNOWN INDICATION
     Dosage: UNKNOWN
     Route: 058
     Dates: end: 20130531

REACTIONS (2)
  - Cardiac failure congestive [Unknown]
  - Breast cancer metastatic [Unknown]
